FAERS Safety Report 10675819 (Version 1)
Quarter: 2014Q4

REPORT INFORMATION
  Report Type: Spontaneous
  Country: DE (occurrence: DE)
  Receive Date: 20141225
  Receipt Date: 20141225
  Transmission Date: 20150529
  Serious: Yes (Other)
  Sender: FDA-Public Use
  Company Number: DE-AUROBINDO-AUR-APL-2014-13044

PATIENT
  Age: 39 Year
  Sex: Female
  Weight: 54 kg

DRUGS (7)
  1. DIPHENHYDRAMINE 50MG [Suspect]
     Active Substance: DIPHENHYDRAMINE
     Indication: ANXIETY DISORDER
     Dosage: 50 MG, ONCE A DAY
     Route: 048
     Dates: start: 20131006, end: 20140629
  2. CEFUROXIM                          /00454602/ [Concomitant]
     Active Substance: CEFUROXIME
     Indication: INFECTION PROPHYLAXIS
     Dosage: UNK
     Route: 065
  3. GABAPENTIN 400MG [Suspect]
     Active Substance: GABAPENTIN
     Dosage: 350 MG, DAILY
     Route: 048
  4. FOLSAEURE [Concomitant]
     Active Substance: FOLIC ACID
     Indication: PROPHYLAXIS OF NEURAL TUBE DEFECT
     Dosage: UNK
     Route: 048
  5. GABAPENTIN 400MG [Suspect]
     Active Substance: GABAPENTIN
     Indication: RESTLESS LEGS SYNDROME
     Dosage: 300 MG, DAILY
     Route: 048
  6. GABAPENTIN 400MG [Suspect]
     Active Substance: GABAPENTIN
     Dosage: 400 MG, DAILY
     Route: 048
     Dates: start: 20131006, end: 20140629
  7. SERTRALINE [Suspect]
     Active Substance: SERTRALINE HYDROCHLORIDE
     Indication: DEPRESSION
     Dosage: 200 MG, ONCE A DAY
     Route: 048
     Dates: start: 20131006, end: 20140629

REACTIONS (2)
  - Vanishing twin syndrome [Recovered/Resolved]
  - Maternal exposure during pregnancy [Unknown]
